FAERS Safety Report 9653653 (Version 2)
Quarter: 2013Q4

REPORT INFORMATION
  Report Type: Spontaneous
  Country: US (occurrence: None)
  Receive Date: 20131028
  Receipt Date: 20131205
  Transmission Date: 20140711
  Serious: Yes (Other)
  Sender: FDA-Public Use
  Company Number: 2013US002733

PATIENT
  Age: 58 Year
  Sex: Female

DRUGS (3)
  1. ICLUSIG [Suspect]
     Indication: CHRONIC MYELOID LEUKAEMIA
     Route: 048
     Dates: start: 201306, end: 2013
  2. METFORMIN (METFORMIN) [Concomitant]
  3. VITAMIN D (VITAMIN D) [Concomitant]

REACTIONS (2)
  - Eye haemorrhage [None]
  - Unevaluable event [None]
